FAERS Safety Report 7548386-3 (Version None)
Quarter: 2011Q2

REPORT INFORMATION
  Report Type: 
  Country: None (occurrence: None)
  Receive Date: 20110615
  Receipt Date: 20110601
  Transmission Date: 20111010
  Serious: Yes (Other)
  Sender: FDA-Public Use
  Company Number: JP-ASTELLAS-2011JP003643

PATIENT
  Age: 79 Year
  Sex: Male

DRUGS (13)
  1. AMLODIPINE [Concomitant]
     Dosage: 5 MG, UNKNOWN/D
     Route: 048
  2. FAMOTIDINE [Concomitant]
     Dosage: 40 MG, UNKNOWN/D
     Route: 048
  3. ASPIRIN [Concomitant]
     Dosage: 100 MG, UNKNOWN/D
     Route: 048
  4. WARFARIN SODIUM [Concomitant]
     Dosage: 1 MG, UNKNOWN/D
     Route: 048
  5. SIGMART [Concomitant]
     Dosage: 10 MG, UNKNOWN/D
     Route: 048
  6. LANIRAPID [Suspect]
     Dosage: 0.05 MG, UNKNOWN/D
     Route: 048
     Dates: end: 20110531
  7. STAYBLA [Suspect]
     Dosage: 0.1 MG, UNKNOWN/D
     Route: 048
     Dates: end: 20110531
  8. ARICEPT [Suspect]
     Dosage: 5 MG, UNKNOWN/D
     Route: 048
     Dates: end: 20110531
  9. PLETAL [Concomitant]
     Dosage: 200 MG, UNKNOWN/D
     Route: 048
  10. NITRODERM [Concomitant]
     Dosage: 25 MG, UNKNOWN/D
     Route: 023
  11. VESICARE [Suspect]
     Dosage: 10 MG, UNKNOWN/D
     Route: 048
     Dates: end: 20110531
  12. EVIPROSTAT [Concomitant]
     Dosage: UNK
     Route: 048
  13. ISOSORBIDE DINITRATE [Concomitant]
     Dosage: 40 MG, UNKNOWN/D
     Route: 048

REACTIONS (3)
  - ELECTROCARDIOGRAM QT PROLONGED [None]
  - VENTRICULAR TACHYCARDIA [None]
  - LOSS OF CONSCIOUSNESS [None]
